FAERS Safety Report 7394095-3 (Version None)
Quarter: 2011Q2

REPORT INFORMATION
  Report Type: 
  Country: None (occurrence: None)
  Receive Date: 20110405
  Receipt Date: 20110331
  Transmission Date: 20111010
  Serious: Yes (Hospitalization)
  Sender: FDA-Public Use
  Company Number: US-ALEXION-A201100454

PATIENT
  Sex: Female
  Weight: 68 kg

DRUGS (2)
  1. SOLIRIS [Suspect]
     Indication: PAROXYSMAL NOCTURNAL HAEMOGLOBINURIA
     Dosage: UNK
     Route: 042
     Dates: start: 20080201
  2. SOLIRIS [Suspect]
     Dosage: 900 MG, Q2W
     Route: 042

REACTIONS (7)
  - MENINGITIS [None]
  - PYREXIA [None]
  - VOMITING [None]
  - SNEEZING [None]
  - URINARY TRACT INFECTION [None]
  - HEADACHE [None]
  - FLANK PAIN [None]
